FAERS Safety Report 9833510 (Version 2)
Quarter: 2014Q1

REPORT INFORMATION
  Report Type: Report from Study
  Country: FR (occurrence: FR)
  Receive Date: 20140122
  Receipt Date: 20140130
  Transmission Date: 20141002
  Serious: Yes (Hospitalization)
  Sender: FDA-Public Use
  Company Number: FR-ROCHE-1333444

PATIENT
  Sex: Female

DRUGS (16)
  1. RITUXIMAB [Suspect]
     Indication: RHEUMATOID ARTHRITIS
     Dosage: DAY 15 INFUSION ON 10/JUL/2008.
     Route: 065
     Dates: start: 20080625
  2. RITUXIMAB [Suspect]
     Dosage: DAY 15 INFUSION ON 16/APR/2009
     Route: 065
     Dates: start: 20090401
  3. RITUXIMAB [Suspect]
     Dosage: DAY 15 INFUSION 11/FEB/2010
     Route: 065
     Dates: start: 20100128
  4. RITUXIMAB [Suspect]
     Dosage: DAY 15 INFUSION ON 09/NOV/2010
     Route: 065
     Dates: start: 20101021
  5. RITUXIMAB [Suspect]
     Dosage: DAY 15 INFUSION ON 20/APR/2011.
     Route: 065
     Dates: start: 20110405
  6. RITUXIMAB [Suspect]
     Dosage: DAY 15 INFUSION 27/OCT/2011
     Route: 065
     Dates: start: 20111013
  7. RITUXIMAB [Suspect]
     Dosage: DAY 15 INFUSION ON 26/APR/2012
     Route: 065
     Dates: start: 20120412
  8. RITUXIMAB [Suspect]
     Dosage: SINGLE INJECTION
     Route: 065
     Dates: start: 20121018
  9. RITUXIMAB [Suspect]
     Dosage: SINGLE INJECTION
     Route: 065
     Dates: start: 20130405
  10. METHOTREXATE [Concomitant]
     Route: 065
  11. METHOTREXATE [Concomitant]
     Route: 065
  12. METHOTREXATE [Concomitant]
     Route: 065
  13. METHOTREXATE [Concomitant]
     Route: 065
  14. METHOTREXATE [Concomitant]
     Route: 065
  15. CORTANCYL [Concomitant]
     Dosage: PER DAY
     Route: 065
  16. CORTANCYL [Concomitant]
     Dosage: PER DAY
     Route: 065

REACTIONS (7)
  - Embolism [Not Recovered/Not Resolved]
  - Lymphocele [Not Recovered/Not Resolved]
  - Pleural effusion [Not Recovered/Not Resolved]
  - Vertigo [Recovered/Resolved]
  - Chills [Recovered/Resolved]
  - Nasopharyngitis [Recovered/Resolved]
  - Conjunctivitis [Recovered/Resolved]
